APPROVED DRUG PRODUCT: ALINIA
Active Ingredient: NITAZOXANIDE
Strength: 500MG **Federal Register determination that product was not discontinued or withdrawn for safety or effectiveness reasons**
Dosage Form/Route: TABLET;ORAL
Application: N021497 | Product #001
Applicant: ROMARK LABORATORIES
Approved: Jul 21, 2004 | RLD: Yes | RS: No | Type: DISCN